FAERS Safety Report 22625431 (Version 1)
Quarter: 2023Q2

REPORT INFORMATION
  Report Type: Other
  Country: CA (occurrence: CA)
  Receive Date: 20230621
  Receipt Date: 20230621
  Transmission Date: 20230721
  Serious: Yes (Other)
  Sender: FDA-Public Use
  Company Number: CA-PFIZER INC-202300185023

PATIENT
  Age: 35 Year
  Sex: Female

DRUGS (3)
  1. RITUXIMAB [Suspect]
     Active Substance: RITUXIMAB
     Indication: Myasthenia gravis
     Dosage: 1 G, 1 EVERY 2 WEEKS
     Route: 042
  2. RITUXIMAB [Suspect]
     Active Substance: RITUXIMAB
     Indication: Myasthenia gravis
     Dosage: 500 MG, 1 EVERY 6 MONTHS
     Route: 042
  3. PREDNISONE [Suspect]
     Active Substance: PREDNISONE
     Indication: Myasthenia gravis
     Route: 065

REACTIONS (9)
  - Bacteraemia [Unknown]
  - Oral herpes [Unknown]
  - Pharyngitis [Unknown]
  - Respiratory tract infection [Unknown]
  - Treatment failure [Unknown]
  - Carpal tunnel syndrome [Unknown]
  - Dyspnoea exertional [Unknown]
  - Premature menopause [Unknown]
  - Off label use [Unknown]
